FAERS Safety Report 4699106-1 (Version None)
Quarter: 2005Q2

REPORT INFORMATION
  Report Type: 
  Country: None (occurrence: None)
  Receive Date: 20050624
  Receipt Date: 20050520
  Transmission Date: 20051028
  Serious: Yes (Other)
  Sender: FDA-Public Use
  Company Number: US-AMGEN-US134756

PATIENT
  Sex: Male
  Weight: 98.1 kg

DRUGS (15)
  1. SENSIPAR [Suspect]
     Indication: HYPERPARATHYROIDISM SECONDARY
     Route: 048
     Dates: start: 20050303, end: 20050615
  2. TACROLIMUS [Suspect]
     Dates: start: 20041111
  3. LIPITOR [Concomitant]
     Dates: start: 20050510
  4. CELLCEPT [Concomitant]
     Dates: start: 20040531
  5. PREDNISONE TAB [Concomitant]
     Dates: start: 20041001
  6. DILTIAZEM [Concomitant]
     Dates: start: 20040511
  7. ACYCLOVIR [Concomitant]
     Dates: start: 20050518
  8. BACTRIM [Concomitant]
     Dates: start: 20040511
  9. LISINOPRIL [Concomitant]
     Dates: start: 20050501
  10. METOPROLOL [Concomitant]
     Dates: start: 20040628
  11. ASPIRIN [Concomitant]
     Dates: start: 20040720
  12. ALLOPURINOL [Concomitant]
     Dates: start: 20040609
  13. FOSAMAX [Concomitant]
     Dates: start: 20040630
  14. INSULIN [Concomitant]
     Dates: start: 20041027
  15. ZANTAC [Concomitant]
     Dates: start: 20040511

REACTIONS (5)
  - BLOOD CREATININE INCREASED [None]
  - DIARRHOEA [None]
  - DRUG LEVEL INCREASED [None]
  - IMMUNOSUPPRESSANT DRUG LEVEL INCREASED [None]
  - TREMOR [None]
